FAERS Safety Report 5404146-0 (Version None)
Quarter: 2007Q3

REPORT INFORMATION
  Report Type: 
  Country: None (occurrence: None)
  Receive Date: 20070731
  Receipt Date: 20070723
  Transmission Date: 20080115
  Serious: Yes (Hospitalization)
  Sender: FDA-Public Use
  Company Number: 163-21880-07071299

PATIENT
  Sex: Male

DRUGS (11)
  1. REVLIMID [Suspect]
     Indication: MULTIPLE MYELOMA
     Dosage: 5 MG, 1 IN 1 D, ORAL; 10 MG, 1 IN 1 D, ORAL; 5 MG 1 IN 1 D, ORAL; 10 MG, 1 IN 1 D, ORAL
     Route: 048
     Dates: start: 20060801, end: 20060901
  2. REVLIMID [Suspect]
     Indication: MULTIPLE MYELOMA
     Dosage: 5 MG, 1 IN 1 D, ORAL; 10 MG, 1 IN 1 D, ORAL; 5 MG 1 IN 1 D, ORAL; 10 MG, 1 IN 1 D, ORAL
     Route: 048
     Dates: start: 20061001, end: 20070201
  3. REVLIMID [Suspect]
     Indication: MULTIPLE MYELOMA
     Dosage: 5 MG, 1 IN 1 D, ORAL; 10 MG, 1 IN 1 D, ORAL; 5 MG 1 IN 1 D, ORAL; 10 MG, 1 IN 1 D, ORAL
     Route: 048
     Dates: start: 20070301
  4. REVLIMID [Suspect]
     Indication: MULTIPLE MYELOMA
     Dosage: 5 MG, 1 IN 1 D, ORAL; 10 MG, 1 IN 1 D, ORAL; 5 MG 1 IN 1 D, ORAL; 10 MG, 1 IN 1 D, ORAL
     Route: 048
     Dates: start: 20070401
  5. ZOLPIDEM TARTRATE [Concomitant]
  6. TEMAZEPAM [Concomitant]
  7. SPIRONOLACTONE [Concomitant]
  8. GABAPENTIN [Concomitant]
  9. ZETIA [Concomitant]
  10. PLAVIX [Concomitant]
  11. OMEPRAZOLE [Concomitant]

REACTIONS (1)
  - FOOD POISONING [None]
